FAERS Safety Report 4850709-0 (Version None)
Quarter: 2005Q4

REPORT INFORMATION
  Report Type: 
  Country: None (occurrence: None)
  Receive Date: 20051212
  Receipt Date: 20051206
  Transmission Date: 20060501
  Serious: Yes (Hospitalization)
  Sender: FDA-Public Use
  Company Number: 2005CG02019

PATIENT
  Age: 83 Year
  Sex: Female

DRUGS (6)
  1. NEXIUM [Suspect]
     Route: 048
  2. FERO GRAD LP VITAMINE C 500 [Suspect]
     Route: 048
  3. IDARAC [Suspect]
     Route: 048
  4. TAREG [Suspect]
     Route: 048
  5. FLUDEX [Suspect]
     Route: 048
  6. AMLOR [Suspect]
     Route: 048

REACTIONS (1)
  - URINARY RETENTION [None]
